FAERS Safety Report 5651187-4 (Version None)
Quarter: 2008Q1

REPORT INFORMATION
  Report Type: 
  Country: None (occurrence: None)
  Receive Date: 20080131
  Receipt Date: 20071106
  Transmission Date: 20080703
  Serious: No
  Sender: FDA-Public Use
  Company Number: US200711001612

PATIENT
  Age: 74 Year
  Sex: Female
  Weight: 68.9 kg

DRUGS (2)
  1. BYETTA [Suspect]
     Indication: GASTRIC DISORDER
     Dosage: 5 UG, 2/D, SUBCUTANEOUS
     Route: 058
     Dates: start: 20070901
  2. GLIPIZIDE [Concomitant]

REACTIONS (2)
  - INFREQUENT BOWEL MOVEMENTS [None]
  - WEIGHT INCREASED [None]
